FAERS Safety Report 23312255 (Version 1)
Quarter: 2023Q4

REPORT INFORMATION
  Report Type: Spontaneous
  Country: NO (occurrence: NO)
  Receive Date: 20231219
  Receipt Date: 20231219
  Transmission Date: 20240110
  Serious: Yes (Life-Threatening, Hospitalization, Other)
  Sender: FDA-Public Use
  Company Number: None

PATIENT
  Age: 72 Year
  Sex: Female
  Weight: 54 kg

DRUGS (5)
  1. VENETOCLAX [Suspect]
     Active Substance: VENETOCLAX
     Indication: Chronic lymphocytic leukaemia
     Dosage: DOSE WAS INCREASED: 20 MG FROM 27/JAN, 50 MG FROM 03/FEB AND 100 MG FROM 10/FEB.
     Route: 048
     Dates: start: 20220127, end: 20220217
  2. ENALAPRIL MALEATE [Concomitant]
     Active Substance: ENALAPRIL MALEATE
     Indication: Hypertension
     Dosage: TAB 20 MG.?C09AA02 - ENALAPRIL - ONGOING TREATMENT
  3. LEVOTHYROXINE SODIUM [Concomitant]
     Active Substance: LEVOTHYROXINE SODIUM
     Indication: Hypothyroidism
     Dosage: TAB 100 MIKROG?H03AA01 - LEVOTYROKSINNATRIUM - ONGOING TREATMENT
  4. Lerkanidipin [Concomitant]
     Indication: Hypertension
     Dosage: ACTAVIS TAB 20 MG?C08CA13 - LERKANIDIPIN - ONGOING TREATMENT
  5. PREDNISOLONE [Concomitant]
     Active Substance: PREDNISOLONE
     Indication: Autoimmune haemolytic anaemia
     Dosage: BEING TAPERED.

REACTIONS (10)
  - Dyspnoea [Recovered/Resolved]
  - Pulmonary embolism [Recovered/Resolved]
  - Headache [Unknown]
  - Asthenia [Unknown]
  - Haemoglobin decreased [Recovered/Resolved]
  - Dysstasia [Recovered/Resolved]
  - Chromaturia [Unknown]
  - Cardiac murmur [Unknown]
  - Blood urine present [Unknown]
  - Nasopharyngitis [Unknown]

NARRATIVE: CASE EVENT DATE: 20220211
